FAERS Safety Report 11071395 (Version 1)
Quarter: 2015Q2

REPORT INFORMATION
  Report Type: Spontaneous
  Country: TR (occurrence: None)
  Receive Date: 20150424
  Receipt Date: 20150424
  Transmission Date: 20150821
  Serious: Yes (Hospitalization, Other)
  Sender: FDA-Public Use
  Company Number: TR-ZYDUS-007749

PATIENT
  Age: 43 Year
  Sex: Female

DRUGS (2)
  1. RIBAVIRIN (RIBAVIRIN) [Suspect]
     Active Substance: RIBAVIRIN
     Dates: start: 201208
  2. PEGINTERFERON ALFA-2A (PEGINTERFERON ALFA-2A) [Suspect]
     Active Substance: PEGINTERFERON ALFA-2A
     Dates: start: 201208

REACTIONS (4)
  - Rheumatoid arthritis [None]
  - Autoimmune thyroiditis [None]
  - Insomnia [None]
  - Diffuse alopecia [None]
